FAERS Safety Report 22008672 (Version 1)
Quarter: 2023Q1

REPORT INFORMATION
  Report Type: Spontaneous
  Country: JP (occurrence: JP)
  Receive Date: 20230219
  Receipt Date: 20230219
  Transmission Date: 20230417
  Serious: Yes (Other)
  Sender: FDA-Public Use
  Company Number: JP-002147023-NVSJ2023JP003266

PATIENT

DRUGS (4)
  1. ILARIS [Suspect]
     Active Substance: CANAKINUMAB
     Indication: Familial mediterranean fever
     Dosage: ONCE A MONTH
     Route: 003
  2. COLCHICINE [Concomitant]
     Active Substance: COLCHICINE
     Indication: Familial mediterranean fever
     Dosage: 2 MG
     Route: 065
  3. PREDONINE [Concomitant]
     Active Substance: PREDNISOLONE
     Indication: Familial mediterranean fever
     Dosage: 20 MG, QD
     Route: 065
  4. PREDONINE [Concomitant]
     Active Substance: PREDNISOLONE
     Dosage: 10 MG, QD
     Route: 065

REACTIONS (8)
  - Ileal ulcer [Unknown]
  - Melaena [Unknown]
  - Peritonitis [Unknown]
  - Incarcerated parastomal hernia [Unknown]
  - Panniculitis [Unknown]
  - Pyrexia [Unknown]
  - Peritoneal adhesions [Unknown]
  - Drug ineffective [Unknown]
